FAERS Safety Report 7738441-7 (Version None)
Quarter: 2011Q3

REPORT INFORMATION
  Report Type: 
  Country: None (occurrence: None)
  Receive Date: 20110908
  Receipt Date: 20110830
  Transmission Date: 20111222
  Serious: No
  Sender: FDA-Public Use
  Company Number: US-B.I. PHARMACEUTICALS,INC./RIDGEFIELD-2011-BP-20196BP

PATIENT
  Sex: Male

DRUGS (3)
  1. PRADAXA [Suspect]
     Indication: ATRIAL FIBRILLATION
     Dosage: 300 MG
     Route: 048
     Dates: start: 20110101
  2. SOTALOL HCL [Concomitant]
     Indication: ATRIAL FIBRILLATION
     Dosage: 160 MG
     Route: 048
  3. MAGNESIUM SUPPLEMENT [Concomitant]
     Indication: ATRIAL FIBRILLATION
     Route: 048

REACTIONS (1)
  - PETECHIAE [None]
